FAERS Safety Report 8853668 (Version 2)
Quarter: 2012Q4

REPORT INFORMATION
  Report Type: 
  Country: DE (occurrence: DE)
  Receive Date: 20121023
  Receipt Date: 20121102
  Transmission Date: 20130627
  Serious: Yes (Death, Other)
  Sender: FDA-Public Use
  Company Number: DE-GENZYME-CAMP-1002478

PATIENT
  Sex: Male

DRUGS (8)
  1. CAMPATH [Suspect]
     Indication: CHRONIC LYMPHOCYTIC LEUKAEMIA
     Dosage: 30 mg per day, 3 times
     Route: 065
     Dates: start: 20120911, end: 20120919
  2. DEXAMETHASONE [Concomitant]
     Indication: PRODUCT USED FOR UNKNOWN INDICATION
     Dosage: 40 mg, UNK
     Route: 065
     Dates: start: 20120911, end: 20120914
  3. BENDAMUSTINE [Concomitant]
     Indication: PRODUCT USED FOR UNKNOWN INDICATION
     Dosage: 160 mg, UNK
     Route: 065
     Dates: start: 20120917, end: 20120918
  4. RITUXIMAB [Concomitant]
     Indication: CHRONIC LYMPHOCYTIC LEUKAEMIA
     Dosage: 3 cycles
     Route: 065
     Dates: start: 201207, end: 201209
  5. CYCLOPHOSPHAMIDE [Concomitant]
     Indication: CHRONIC LYMPHOCYTIC LEUKAEMIA
     Dosage: 3 cycles
     Route: 065
     Dates: start: 201207, end: 201209
  6. DOXORUBICIN [Concomitant]
     Indication: CHRONIC LYMPHOCYTIC LEUKAEMIA
     Dosage: 3 cycles
     Route: 065
     Dates: start: 201207, end: 201209
  7. ONCOVIN [Concomitant]
     Indication: CHRONIC LYMPHOCYTIC LEUKAEMIA
     Dosage: 3 cycles
     Route: 065
     Dates: start: 201207, end: 201209
  8. PREDNISONE [Concomitant]
     Indication: CHRONIC LYMPHOCYTIC LEUKAEMIA
     Dosage: 3 cycles
     Route: 065
     Dates: start: 201207, end: 201209

REACTIONS (3)
  - Renal failure acute [Unknown]
  - Blood lactate dehydrogenase increased [Unknown]
  - Chronic lymphocytic leukaemia [Fatal]
